FAERS Safety Report 10969483 (Version 1)
Quarter: 2015Q1

REPORT INFORMATION
  Report Type: Report from Study
  Country: US (occurrence: US)
  Receive Date: 20150331
  Receipt Date: 20150331
  Transmission Date: 20150721
  Serious: Yes (Other)
  Sender: FDA-Public Use
  Company Number: US-BIOGENIDEC-2015BI039527

PATIENT
  Sex: Female
  Weight: 78 kg

DRUGS (10)
  1. ADVIL [Concomitant]
     Active Substance: IBUPROFEN
     Route: 048
  2. ZOCOR [Concomitant]
     Active Substance: SIMVASTATIN
     Route: 048
  3. AVONEX [Suspect]
     Active Substance: INTERFERON BETA-1A
     Indication: MULTIPLE SCLEROSIS
     Route: 030
     Dates: start: 20121015, end: 2013
  4. AVONEX [Suspect]
     Active Substance: INTERFERON BETA-1A
     Indication: MULTIPLE SCLEROSIS
     Route: 030
     Dates: start: 20030721
  5. XANAX [Concomitant]
     Active Substance: ALPRAZOLAM
     Route: 048
  6. MYSOLINE [Concomitant]
     Active Substance: PRIMIDONE
     Route: 048
  7. AVONEX [Suspect]
     Active Substance: INTERFERON BETA-1A
     Indication: MULTIPLE SCLEROSIS
     Route: 030
  8. VITAMIN D3 [Concomitant]
     Active Substance: CHOLECALCIFEROL
     Route: 048
  9. SYMMETREL [Concomitant]
     Active Substance: AMANTADINE HYDROCHLORIDE
     Route: 048
  10. ARISTOCORT-A [Concomitant]
     Route: 061

REACTIONS (5)
  - Injection site bruising [Unknown]
  - Chronic kidney disease [Unknown]
  - Vasculitis [Unknown]
  - Injection site pain [Unknown]
  - Impaired healing [Unknown]

NARRATIVE: CASE EVENT DATE: 2013
